FAERS Safety Report 24450867 (Version 1)
Quarter: 2024Q4

REPORT INFORMATION
  Report Type: Spontaneous
  Country: US (occurrence: US)
  Receive Date: 20241017
  Receipt Date: 20241017
  Transmission Date: 20250114
  Serious: No
  Sender: TARO
  Company Number: US-TARO PHARMACEUTICALS USA INC.-2024TAR00927

PATIENT

DRUGS (3)
  1. AZELAIC ACID [Suspect]
     Active Substance: AZELAIC ACID
     Indication: Acne
     Dosage: UNK, MORNING AND NIGHT AS PRESCRIBED, FACE AND NECK
     Route: 061
     Dates: start: 202405
  2. AZELAIC ACID [Suspect]
     Active Substance: AZELAIC ACID
     Indication: Skin discolouration
  3. AZELAIC ACID [Suspect]
     Active Substance: AZELAIC ACID
     Indication: Chloasma

REACTIONS (3)
  - Skin burning sensation [Recovered/Resolved]
  - Skin irritation [Recovered/Resolved]
  - Erythema [Recovered/Resolved]

NARRATIVE: CASE EVENT DATE: 20240501
